FAERS Safety Report 14296578 (Version 4)
Quarter: 2018Q3

REPORT INFORMATION
  Report Type: Spontaneous
  Country: FR (occurrence: FR)
  Receive Date: 20171218
  Receipt Date: 20180809
  Transmission Date: 20181010
  Serious: Yes (Life-Threatening, Hospitalization, Other)
  Sender: FDA-Public Use
  Company Number: FR-ABBVIE-17S-056-2196079-00

PATIENT
  Age: 37 Year
  Sex: Female
  Weight: 72 kg

DRUGS (4)
  1. PREZISTA [Suspect]
     Active Substance: DARUNAVIR ETHANOLATE
     Indication: HIV INFECTION
     Dosage: 1 DF (TABLET), 1D, 800MG
     Route: 048
     Dates: start: 20171102
  2. TIVICAY [Suspect]
     Active Substance: DOLUTEGRAVIR SODIUM
     Indication: HIV INFECTION
     Dosage: 1 DF, 1D
     Route: 048
     Dates: start: 20171010, end: 20171102
  3. NORVIR [Suspect]
     Active Substance: RITONAVIR
     Indication: HIV INFECTION
     Dosage: 1 DF (TABLET), 1D, 100MG
     Route: 048
     Dates: start: 20171102
  4. TRUVADA [Suspect]
     Active Substance: EMTRICITABINE\TENOFOVIR DISOPROXIL FUMARATE
     Indication: HIV INFECTION
     Dosage: 1 DF, 1D
     Route: 048
     Dates: start: 20171010

REACTIONS (19)
  - Total bile acids increased [Unknown]
  - Gastric disorder [Unknown]
  - Endometritis decidual [Unknown]
  - Potassium wasting nephropathy [Unknown]
  - Coagulopathy [Unknown]
  - Hepatic enzyme increased [Recovering/Resolving]
  - Live birth [Unknown]
  - Cholestasis [Unknown]
  - Pruritus [Recovering/Resolving]
  - Hyperthyroidism [Unknown]
  - Nausea [Recovering/Resolving]
  - General physical health deterioration [Unknown]
  - Dyspnoea [Unknown]
  - Renal tubular disorder [Unknown]
  - Hypokalaemia [Unknown]
  - Hepatotoxicity [Unknown]
  - Hepatocellular injury [Recovered/Resolved]
  - Goitre [Unknown]
  - Exposure during pregnancy [Unknown]

NARRATIVE: CASE EVENT DATE: 2017
